FAERS Safety Report 19578251 (Version 1)
Quarter: 2021Q3

REPORT INFORMATION
  Report Type: Spontaneous
  Country: US (occurrence: US)
  Receive Date: 20210719
  Receipt Date: 20210719
  Transmission Date: 20211014
  Serious: Yes (Other)
  Sender: FDA-Public Use
  Company Number: US-SA-2021SA236807

PATIENT
  Age: 47 Year
  Sex: Male

DRUGS (1)
  1. ZANTAC [Suspect]
     Active Substance: RANITIDINE HYDROCHLORIDE
     Indication: ABDOMINAL DISCOMFORT
     Dosage: 75 MG, QW
     Dates: start: 200401, end: 201901

REACTIONS (2)
  - Neoplasm malignant [Unknown]
  - Renal cancer stage I [Not Recovered/Not Resolved]

NARRATIVE: CASE EVENT DATE: 20200320
